FAERS Safety Report 4412446-6 (Version None)
Quarter: 2004Q2

REPORT INFORMATION
  Report Type: 
  Country: None (occurrence: None)
  Receive Date: 20040630
  Receipt Date: 20040329
  Transmission Date: 20050107
  Serious: No
  Sender: FDA-Public Use
  Company Number: 04P-163-0255370-00

PATIENT
  Age: 60 Year
  Sex: Female
  Weight: 54.4316 kg

DRUGS (6)
  1. HUMIRA [Suspect]
     Indication: RHEUMATOID ARTHRITIS
     Dosage: 40 MG, 1 IN 2 WK, SUBCUTANEOUS
     Route: 058
     Dates: start: 20030801
  2. ORETIC (HYDROCHLOROTHIAZIDE) (HYDROCHLOROTHIAZIDE) [Concomitant]
  3. LEVOTHYROXINE SODIUM [Concomitant]
  4. CONJUGATED ESTROGEN [Concomitant]
  5. CALCIUM CITRATE [Concomitant]
  6. GLUCOSAMINE [Concomitant]

REACTIONS (1)
  - INJECTION SITE PAIN [None]
